FAERS Safety Report 18645459 (Version 1)
Quarter: 2020Q4

REPORT INFORMATION
  Report Type: Spontaneous
  Country: DE (occurrence: DE)
  Receive Date: 20201222
  Receipt Date: 20201222
  Transmission Date: 20210114
  Serious: Yes (Hospitalization, Other)
  Sender: FDA-Public Use
  Company Number: DE-AUROBINDO-AUR-APL-2020-061919

PATIENT
  Age: 13 Year
  Sex: Female
  Weight: 65 kg

DRUGS (1)
  1. IBUPROFEN. [Suspect]
     Active Substance: IBUPROFEN
     Indication: PRODUCT USED FOR UNKNOWN INDICATION
     Dosage: 10200 MILLIGRAM, ONCE A DAY (DAILY DOSE: 10200 MG MILLGRAM(S) EVERY DAYS 17 SEPARATED DOSES)
     Route: 048
     Dates: start: 20201004, end: 20201004

REACTIONS (3)
  - Poisoning [Recovered/Resolved]
  - Vomiting [Recovered/Resolved]
  - Apathy [Recovered/Resolved]

NARRATIVE: CASE EVENT DATE: 20201004
